FAERS Safety Report 8507129-7 (Version None)
Quarter: 2012Q3

REPORT INFORMATION
  Report Type: 
  Country: None (occurrence: None)
  Receive Date: 20120703
  Receipt Date: 20120621
  Transmission Date: 20120928
  Serious: Yes (Death, Hospitalization)
  Sender: FDA-Public Use
  Company Number: DSA_58177_2012

PATIENT
  Age: 83 Year
  Sex: Female

DRUGS (5)
  1. AUGMENTIN [Suspect]
     Indication: PRODUCT USED FOR UNKNOWN INDICATION
     Dosage: DF ORAL
     Route: 048
     Dates: start: 20110717, end: 20110727
  2. NOVOMIX (NOVOMIX - INSULIN ASPART) [Suspect]
     Indication: PRODUCT USED FOR UNKNOWN INDICATION
     Dosage: DF SUBCUTANEOUS
     Route: 058
     Dates: start: 20110717, end: 20110823
  3. TILDIEM (TILDIEM -DILTIAZEM HYDROCHLORIDE) (NOT SPECIFIED) [Suspect]
     Indication: PRODUCT USED FOR UNKNOWN INDICATION
     Dosage: 60 MG, FREQUENCY UNKNOWN ORAL
     Route: 048
     Dates: start: 20110717, end: 20110824
  4. AMLODIPINE BESYLATE [Suspect]
     Indication: PRODUCT USED FOR UNKNOWN INDICATION
     Dosage: DF ORAL
     Route: 048
     Dates: start: 20110717, end: 20110824
  5. REPAGLINIDE [Suspect]
     Indication: PRODUCT USED FOR UNKNOWN INDICATION
     Dosage: DF ORAL
     Route: 048
     Dates: start: 20110707, end: 20110723

REACTIONS (9)
  - CHLAMYDIA TEST POSITIVE [None]
  - ERYSIPELAS [None]
  - CARDIO-RESPIRATORY ARREST [None]
  - SHOCK [None]
  - DRUG RASH WITH EOSINOPHILIA AND SYSTEMIC SYMPTOMS [None]
  - CARDIOPULMONARY FAILURE [None]
  - CULTURE URINE POSITIVE [None]
  - ACUTE PULMONARY OEDEMA [None]
  - BACTERAEMIA [None]
